FAERS Safety Report 5268493-8 (Version None)
Quarter: 2007Q1

REPORT INFORMATION
  Report Type: 
  Country: None (occurrence: None)
  Receive Date: 20061213
  Receipt Date: 20040804
  Transmission Date: 20070707
  Serious: Yes (Other)
  Sender: FDA-Public Use
  Company Number: 2004UW16564

PATIENT
  Age: 79 Year
  Sex: Male
  Weight: 61.2356 kg

DRUGS (4)
  1. IRESSA [Suspect]
     Indication: NON-SMALL CELL LUNG CANCER
     Dosage: 250 MG PO
     Route: 048
  2. HYDROMOPRHONE [Suspect]
  3. TYLENOL [Concomitant]
  4. ULTRAM [Concomitant]

REACTIONS (1)
  - HALLUCINATION [None]
